FAERS Safety Report 6292248-9 (Version None)
Quarter: 2009Q3

REPORT INFORMATION
  Report Type: 
  Country: None (occurrence: None)
  Receive Date: 20090731
  Receipt Date: 20090728
  Transmission Date: 20100115
  Serious: Yes (Death)
  Sender: FDA-Public Use
  Company Number: PHEH2009US07601

PATIENT
  Sex: Male
  Weight: 71.4 kg

DRUGS (14)
  1. EXJADE [Suspect]
     Indication: MYELODYSPLASTIC SYNDROME
     Dosage: 1000 MG DAILY
     Route: 048
     Dates: start: 20090121, end: 20090630
  2. EXJADE [Suspect]
     Indication: IRON OVERLOAD
  3. HYDROXYUREA [Concomitant]
  4. PREDNISONE [Concomitant]
  5. INSULIN [Concomitant]
  6. RANITIDINE [Concomitant]
  7. M.V.I. [Concomitant]
  8. POTASSIUM CHLORIDE [Concomitant]
  9. ALBUTEROL [Concomitant]
  10. ARANESP [Concomitant]
  11. NIASPAN [Concomitant]
  12. CALCITRIOL [Concomitant]
  13. DILTIAZEM [Concomitant]
  14. LASIX [Concomitant]

REACTIONS (2)
  - ACUTE MYELOID LEUKAEMIA [None]
  - MALIGNANT NEOPLASM PROGRESSION [None]
